FAERS Safety Report 8836625 (Version 1)
Quarter: 2012Q4

REPORT INFORMATION
  Report Type: Spontaneous
  Country: IT (occurrence: None)
  Receive Date: 20121009
  Receipt Date: 20121009
  Transmission Date: 20130627
  Serious: Yes (Hospitalization, Other)
  Sender: FDA-Public Use
  Company Number: IT-MACLEODS PHARMA-000019

PATIENT
  Age: 91 Year
  Sex: Female

DRUGS (9)
  1. LEVOFLOXACIN [Suspect]
     Indication: BACTERIAL INFECTION
  2. HEPARIN [Suspect]
     Indication: ISCHEMIC STROKE
     Route: 058
  3. BUPRENORPHINE [Suspect]
     Indication: PAIN
     Dosage: 35.00-ug-1.0hours/Transdermal
     Route: 062
  4. TRAMADOL [Suspect]
     Indication: ANALGESIA
  5. ENALAPRIL [Suspect]
     Indication: HYPERTENSION
  6. ENALAPRIL MALEATE/HYDROCHLOROTHIAZIDE [Suspect]
     Indication: HYPERTENSION
  7. GLIBENCLAMIDE\METFORMIN [Suspect]
     Indication: TYPE 2 DIABETES MELLITUS
  8. ASPIRIN [Concomitant]
  9. LANSOPRAZOLE [Concomitant]

REACTIONS (5)
  - Hypoglycaemic coma [None]
  - Drug interaction [None]
  - Peripheral artery thrombosis [None]
  - Bacterial infection [None]
  - Localised infection [None]
